FAERS Safety Report 10967010 (Version 4)
Quarter: 2016Q1

REPORT INFORMATION
  Report Type: Spontaneous
  Country: US (occurrence: US)
  Receive Date: 20150330
  Receipt Date: 20160122
  Transmission Date: 20160525
  Serious: Yes (Hospitalization, Disabling, Other)
  Sender: FDA-Public Use
  Company Number: US-009507513-1112USA00795

PATIENT
  Sex: Female

DRUGS (4)
  1. FOSAMAX [Suspect]
     Active Substance: ALENDRONATE SODIUM
     Indication: ARTHRITIS
  2. FOSAMAX [Suspect]
     Active Substance: ALENDRONATE SODIUM
     Indication: OSTEOPOROSIS PROPHYLAXIS
     Dosage: UNK
     Route: 048
     Dates: end: 200804
  3. FOSAMAX [Suspect]
     Active Substance: ALENDRONATE SODIUM
     Indication: OSTEOPOROSIS
     Dosage: 70 MG, UNK
     Route: 048
     Dates: start: 199802, end: 200804
  4. FOSAMAX [Suspect]
     Active Substance: ALENDRONATE SODIUM
     Indication: OSTEOPOROSIS

REACTIONS (15)
  - Arthralgia [Unknown]
  - Impaired healing [Unknown]
  - Blood potassium decreased [Unknown]
  - Femur fracture [Not Recovered/Not Resolved]
  - Pain in extremity [Unknown]
  - Low turnover osteopathy [Not Recovered/Not Resolved]
  - Urinary tract infection [Unknown]
  - Joint instability [Unknown]
  - Product use issue [Unknown]
  - Cerebrovascular accident [Recovered/Resolved]
  - Uterine dilation and curettage [Unknown]
  - Device breakage [Unknown]
  - Intramedullary rod insertion [Unknown]
  - Intramedullary rod insertion [Unknown]
  - Medical device removal [Unknown]

NARRATIVE: CASE EVENT DATE: 2004
